FAERS Safety Report 18370731 (Version 1)
Quarter: 2020Q4

REPORT INFORMATION
  Report Type: Spontaneous
  Country: US (occurrence: US)
  Receive Date: 20201012
  Receipt Date: 20201012
  Transmission Date: 20210114
  Serious: Yes (Other)
  Sender: FDA-Public Use
  Company Number: US-SUNOVION-2020SUN002922

PATIENT
  Sex: Male

DRUGS (1)
  1. LUNESTA [Suspect]
     Active Substance: ESZOPICLONE
     Dosage: 2 MG
     Route: 048

REACTIONS (5)
  - Therapeutic product effect incomplete [Unknown]
  - Anxiety [Unknown]
  - Psychotic behaviour [Unknown]
  - Prescription drug used without a prescription [Unknown]
  - Drug dependence [Unknown]
